FAERS Safety Report 13757796 (Version 1)
Quarter: 2017Q3

REPORT INFORMATION
  Report Type: Report from Study
  Country: None (occurrence: AU)
  Receive Date: 20170717
  Receipt Date: 20170717
  Transmission Date: 20171127
  Serious: Yes (Hospitalization)
  Sender: FDA-Public Use
  Company Number: AU-ABBVIE-17P-008-2037380-00

PATIENT
  Age: 66 Year
  Sex: Male

DRUGS (1)
  1. LUCRIN DEPOT [Suspect]
     Active Substance: LEUPROLIDE ACETATE
     Indication: PROSTATE CANCER
     Route: 065
     Dates: start: 20170215

REACTIONS (2)
  - Infection [Recovered/Resolved]
  - Transurethral prostatectomy [Recovered/Resolved]

NARRATIVE: CASE EVENT DATE: 20170629
